FAERS Safety Report 5084625-9 (Version None)
Quarter: 2006Q3

REPORT INFORMATION
  Report Type: 
  Country: None (occurrence: None)
  Receive Date: 20060821
  Receipt Date: 20060809
  Transmission Date: 20061208
  Serious: Yes (Hospitalization)
  Sender: FDA-Public Use
  Company Number: US-JNJFOC-20060802518

PATIENT
  Sex: Female
  Weight: 65.77 kg

DRUGS (11)
  1. DURAGESIC-100 [Suspect]
     Indication: PAIN
     Route: 062
  2. SYNTHROID [Concomitant]
     Indication: HYPOTHYROIDISM
     Route: 048
  3. PREMARIN [Concomitant]
     Indication: MENOPAUSE
     Route: 048
  4. PREVACID [Concomitant]
     Indication: GASTROOESOPHAGEAL REFLUX DISEASE
     Route: 048
  5. HYDROCHLOROTHIAZIDE [Concomitant]
     Indication: FLUID RETENTION
     Route: 048
  6. WELLBUTRIN [Concomitant]
     Indication: DEPRESSION
     Route: 048
  7. TRAZEDONE [Concomitant]
     Dosage: TAKEN AT BEDTIME
     Route: 048
  8. GLUCOSAMINE-CHONDROITIN [Concomitant]
     Indication: ARTHRALGIA
     Route: 048
  9. SKELAXIN [Concomitant]
     Indication: DRUG USE FOR UNKNOWN INDICATION
     Route: 048
  10. PLAVIX [Concomitant]
     Route: 048
  11. DILAUDID [Concomitant]
     Indication: PAIN
     Route: 048

REACTIONS (5)
  - ABDOMINAL MASS [None]
  - ARTHRALGIA [None]
  - OVARIAN CYST [None]
  - SLEEP DISORDER [None]
  - SPINAL OSTEOARTHRITIS [None]
